FAERS Safety Report 9342400 (Version 1)
Quarter: 2013Q2

REPORT INFORMATION
  Report Type: Spontaneous
  Country: ES (occurrence: ES)
  Receive Date: 20130611
  Receipt Date: 20130611
  Transmission Date: 20140414
  Serious: Yes (Other)
  Sender: FDA-Public Use
  Company Number: ES-BAYER-2013-066639

PATIENT
  Age: 66 Year
  Sex: Female
  Weight: 64 kg

DRUGS (2)
  1. CANESPIE 10 MG/G CREMA [Suspect]
     Indication: FUNGAL INFECTION
     Dosage: UNK
     Route: 003
     Dates: start: 20130114
  2. CANESPIE 10 MG/G CREMA [Suspect]
     Indication: FUNGAL INFECTION

REACTIONS (1)
  - Skin ulcer [Recovering/Resolving]
